FAERS Safety Report 4305649-2 (Version None)
Quarter: 2004Q1

REPORT INFORMATION
  Report Type: 
  Country: None (occurrence: None)
  Receive Date: 20040226
  Receipt Date: 20031223
  Transmission Date: 20041129
  Serious: No
  Sender: FDA-Public Use
  Company Number: US-BRISTOL-MYERS SQUIBB COMPANY-12465605

PATIENT

DRUGS (2)
  1. ABILIFY [Suspect]
     Route: 048
  2. COLESTID [Concomitant]

REACTIONS (1)
  - PSYCHOTIC DISORDER [None]
